FAERS Safety Report 12724351 (Version 2)
Quarter: 2016Q3

REPORT INFORMATION
  Report Type: Report from Study
  Country: CA (occurrence: CA)
  Receive Date: 20160908
  Receipt Date: 20160919
  Transmission Date: 20161109
  Serious: Yes (Other)
  Sender: FDA-Public Use
  Company Number: PHHY2016CA049839

PATIENT
  Age: 51 Year
  Sex: Male

DRUGS (4)
  1. ATORVASTATIN [Concomitant]
     Active Substance: ATORVASTATIN
     Indication: PRODUCT USED FOR UNKNOWN INDICATION
     Route: 065
  2. CANDESARTAN [Concomitant]
     Active Substance: CANDESARTAN
     Indication: PRODUCT USED FOR UNKNOWN INDICATION
     Route: 065
  3. SANDOSTATIN LAR DEPOT [Suspect]
     Active Substance: OCTREOTIDE ACETATE
     Indication: CARCINOID TUMOUR
     Dosage: 20 MG, QMO (ONCE A MONTH)
     Route: 030
     Dates: start: 20160311, end: 20160802
  4. ASAPHEN [Concomitant]
     Active Substance: ASPIRIN
     Indication: PRODUCT USED FOR UNKNOWN INDICATION
     Route: 065

REACTIONS (23)
  - Musculoskeletal chest pain [Unknown]
  - Myalgia [Unknown]
  - Hyperaesthesia [Unknown]
  - Feeling cold [Unknown]
  - Diarrhoea [Unknown]
  - Nasal congestion [Unknown]
  - Influenza like illness [Unknown]
  - Rhinorrhoea [Unknown]
  - Musculoskeletal stiffness [Unknown]
  - Groin pain [Unknown]
  - Asphyxia [Unknown]
  - Muscle spasms [Unknown]
  - Decreased appetite [Unknown]
  - Cough [Unknown]
  - Weight decreased [Unknown]
  - Feeling hot [Unknown]
  - Pain [Recovering/Resolving]
  - Nasopharyngitis [Unknown]
  - Body temperature increased [Unknown]
  - Chills [Unknown]
  - Chest pain [Unknown]
  - Fatigue [Unknown]
  - Injection site pain [Unknown]

NARRATIVE: CASE EVENT DATE: 2016
